FAERS Safety Report 6195593-0 (Version None)
Quarter: 2009Q2

REPORT INFORMATION
  Report Type: 
  Country: None (occurrence: None)
  Receive Date: 20090519
  Receipt Date: 20090515
  Transmission Date: 20091009
  Serious: Yes (Hospitalization)
  Sender: FDA-Public Use
  Company Number: AU-B.I. PHARMACEUTICALS,INC./RIDGEFIELD-2009-AU-00216AU

PATIENT
  Sex: Male
  Weight: 72 kg

DRUGS (4)
  1. MOBIC [Suspect]
     Indication: ARTHRALGIA
     Dosage: 15MG
     Route: 048
     Dates: start: 20090331, end: 20090424
  2. SPIRIVA [Suspect]
     Indication: CHRONIC OBSTRUCTIVE PULMONARY DISEASE
  3. TAMBOCOR [Concomitant]
     Indication: ATRIAL TACHYCARDIA
     Dosage: 50MG
     Route: 048
  4. LOSEC [Concomitant]
     Indication: GASTROOESOPHAGEAL REFLUX DISEASE
     Dosage: 20MG
     Route: 048

REACTIONS (4)
  - DYSPNOEA [None]
  - GASTRIC HAEMORRHAGE [None]
  - GASTRIC ULCER [None]
  - LOSS OF CONSCIOUSNESS [None]
